FAERS Safety Report 5285480-4 (Version None)
Quarter: 2007Q1

REPORT INFORMATION
  Report Type: 
  Country: None (occurrence: None)
  Receive Date: 20070328
  Receipt Date: 20070316
  Transmission Date: 20070707
  Serious: Yes (Hospitalization)
  Sender: FDA-Public Use
  Company Number: FABR-11458

PATIENT
  Age: 50 Year
  Sex: Male
  Weight: 65 kg

DRUGS (15)
  1. FABRAZYME [Suspect]
     Indication: FABRY'S DISEASE
     Dosage: 1 MG/KG Q2WKS IV
     Route: 042
     Dates: start: 20070320
  2. FABRAZYME [Suspect]
     Indication: FABRY'S DISEASE
     Dosage: 65 MG Q2WKS IV
     Route: 042
     Dates: start: 20060322, end: 20070131
  3. SYNTHROID [Concomitant]
  4. AMIODARONE HCL [Concomitant]
  5. ASPIRIN [Concomitant]
  6. LASIX [Concomitant]
  7. INSPRA [Concomitant]
  8. DIGOXIN [Concomitant]
  9. TOPROL-XL [Concomitant]
  10. FERROUS SULFATE [Concomitant]
  11. ADVAIR DISKUS 100/50 [Concomitant]
  12. ARANESP [Concomitant]
  13. SENNA TABLETS [Concomitant]
  14. ATARAX [Concomitant]
  15. COUMADIN [Concomitant]

REACTIONS (4)
  - CARDIAC FAILURE CONGESTIVE [None]
  - DISEASE RECURRENCE [None]
  - FLUID OVERLOAD [None]
  - HEART TRANSPLANT [None]
